FAERS Safety Report 19430123 (Version 4)
Quarter: 2022Q1

REPORT INFORMATION
  Report Type: Spontaneous
  Country: DE (occurrence: DE)
  Receive Date: 20210617
  Receipt Date: 20220217
  Transmission Date: 20220423
  Serious: Yes (Hospitalization, Other)
  Sender: FDA-Public Use
  Company Number: DE-NOVARTISPH-NVSC2020DE226708

PATIENT
  Sex: Female
  Weight: 70 kg

DRUGS (6)
  1. VALSARTAN [Suspect]
     Active Substance: VALSARTAN
     Indication: Cardiac disorder
     Dosage: 1 DF, QD (80 MG/12.5 MG (80/12))
     Route: 065
     Dates: start: 2009, end: 20180713
  2. HYDROCHLOROTHIAZIDE\VALSARTAN [Suspect]
     Active Substance: HYDROCHLOROTHIAZIDE\VALSARTAN
     Indication: Product used for unknown indication
     Dosage: 80 MG, (80MG/12.5 MG)
     Route: 065
     Dates: start: 201405, end: 201503
  3. HYDROCHLOROTHIAZIDE\VALSARTAN [Suspect]
     Active Substance: HYDROCHLOROTHIAZIDE\VALSARTAN
     Dosage: 80 MG, (80MG/12.5 MG)
     Route: 065
     Dates: start: 201701, end: 201807
  4. BISOPROLOL [Concomitant]
     Active Substance: BISOPROLOL
     Indication: Product used for unknown indication
     Dosage: 5 MG
     Route: 065
     Dates: start: 2009
  5. CARBAMAZEPINE [Concomitant]
     Active Substance: CARBAMAZEPINE
     Indication: Product used for unknown indication
     Dosage: 200 MG
     Route: 065
     Dates: start: 2011
  6. ASPIRIN [Concomitant]
     Active Substance: ASPIRIN
     Indication: Product used for unknown indication
     Dosage: 100 UNK
     Route: 065
     Dates: start: 2009

REACTIONS (19)
  - Cerebrovascular accident [Recovering/Resolving]
  - Trigeminal neuralgia [Not Recovered/Not Resolved]
  - Emotional distress [Unknown]
  - Palpitations [Not Recovered/Not Resolved]
  - Fear [Unknown]
  - Hyperhidrosis [Unknown]
  - Tremor [Unknown]
  - Hyperventilation [Unknown]
  - Anxiety [Unknown]
  - Chest pain [Unknown]
  - Restlessness [Unknown]
  - Gastrointestinal disorder [Unknown]
  - Hypertension [Unknown]
  - Dizziness [Not Recovered/Not Resolved]
  - Haemangioma [Unknown]
  - Melanocytic naevus [Unknown]
  - Eczema [Unknown]
  - Seborrhoeic keratosis [Not Recovered/Not Resolved]
  - Product contamination [Unknown]

NARRATIVE: CASE EVENT DATE: 20090101
